FAERS Safety Report 8175184-2 (Version None)
Quarter: 2012Q1

REPORT INFORMATION
  Report Type: 
  Country: None (occurrence: None)
  Receive Date: 20120229
  Receipt Date: 20120224
  Transmission Date: 20120608
  Serious: Yes (Other)
  Sender: FDA-Public Use
  Company Number: BR-ABBOTT-12P-020-0908802-00

PATIENT
  Sex: Female
  Weight: 60 kg

DRUGS (10)
  1. HUMIRA [Suspect]
     Dosage: 2 INJECTIONS IN ONE DAY
     Route: 058
     Dates: start: 20110430, end: 20110430
  2. HUMIRA [Suspect]
     Route: 058
  3. PANTOPRAZOLE [Concomitant]
     Indication: GASTRITIS
     Route: 048
  4. HUMIRA [Suspect]
     Indication: CROHN'S DISEASE
     Dosage: 4 INJECTIONS IN ONE DAY
     Route: 058
     Dates: start: 20110415, end: 20110415
  5. PREDNISONE TAB [Concomitant]
     Indication: CROHN'S DISEASE
  6. DRAMIN [Concomitant]
     Indication: NAUSEA
     Route: 048
  7. HUMIRA [Suspect]
     Route: 058
  8. SCOPOLAMINE [Concomitant]
     Indication: NAUSEA
     Route: 048
  9. CLONAZEPAM [Concomitant]
     Indication: SYNCOPE
     Route: 048
  10. PREDNISONE TAB [Concomitant]
     Indication: PAIN
     Dosage: 2 TABLETS PER DAY
     Route: 048

REACTIONS (25)
  - APHASIA [None]
  - PRURITUS [None]
  - GLOSSODYNIA [None]
  - SECRETION DISCHARGE [None]
  - GASTROINTESTINAL PAIN [None]
  - ENTERITIS INFECTIOUS [None]
  - HEART RATE DECREASED [None]
  - OEDEMA PERIPHERAL [None]
  - DERMATITIS ALLERGIC [None]
  - OEDEMA MOUTH [None]
  - FEELING HOT [None]
  - HYPOAESTHESIA [None]
  - EYE SWELLING [None]
  - COLECTOMY [None]
  - BLOOD GLUCOSE DECREASED [None]
  - HYPOTENSION [None]
  - RASH MACULAR [None]
  - CONSTIPATION [None]
  - NAUSEA [None]
  - GASTROINTESTINAL DISORDER [None]
  - FLATULENCE [None]
  - SJOGREN'S SYNDROME [None]
  - BLISTER [None]
  - PAIN IN EXTREMITY [None]
  - OROPHARYNGEAL PAIN [None]
